FAERS Safety Report 24163701 (Version 2)
Quarter: 2024Q3

REPORT INFORMATION
  Report Type: Spontaneous
  Country: CN (occurrence: CN)
  Receive Date: 20240801
  Receipt Date: 20240809
  Transmission Date: 20241017
  Serious: Yes (Other)
  Sender: ORGANON
  Company Number: CN-ORGANON-O2407CHN002008

PATIENT
  Age: 18 Year
  Sex: Female

DRUGS (3)
  1. SINGULAIR [Suspect]
     Active Substance: MONTELUKAST SODIUM
     Indication: Dermatitis allergic
     Dosage: CONSUMED ABOUT TEN BOXES
     Route: 048
  2. SINGULAIR [Suspect]
     Active Substance: MONTELUKAST SODIUM
     Indication: Dermatitis allergic
     Dosage: TOOK SEVERAL BOXES
     Route: 048
  3. SINGULAIR [Suspect]
     Active Substance: MONTELUKAST SODIUM
     Dosage: ABOUT TEN BOXES
     Route: 048

REACTIONS (9)
  - Bipolar disorder [Unknown]
  - Anger [Recovered/Resolved]
  - Anxiety [Recovered/Resolved]
  - Depression [Recovered/Resolved]
  - Hostility [Unknown]
  - Nightmare [Unknown]
  - Delusion [Unknown]
  - Conversion disorder [Unknown]
  - Product use in unapproved indication [Unknown]
